FAERS Safety Report 5279281-0 (Version None)
Quarter: 2007Q1

REPORT INFORMATION
  Report Type: 
  Country: None (occurrence: None)
  Receive Date: 20070328
  Receipt Date: 20060526
  Transmission Date: 20070707
  Serious: No
  Sender: FDA-Public Use
  Company Number: US-AMGEN-US179294

PATIENT
  Sex: Female
  Weight: 66.7 kg

DRUGS (6)
  1. NEULASTA [Suspect]
     Indication: CHEMOTHERAPY
     Route: 058
     Dates: start: 20060224
  2. ARANESP [Concomitant]
     Route: 065
     Dates: start: 20060406, end: 20060518
  3. ZITHROMAX [Concomitant]
     Route: 065
     Dates: start: 20060418, end: 20060421
  4. KEFLEX [Concomitant]
     Route: 065
     Dates: start: 20060213, end: 20060221
  5. IBUPROFEN [Concomitant]
     Route: 065
     Dates: start: 20060213
  6. LEVAQUIN [Concomitant]
     Route: 065
     Dates: start: 20060404, end: 20060411

REACTIONS (3)
  - CHEST DISCOMFORT [None]
  - DYSPNOEA [None]
  - PYREXIA [None]
